FAERS Safety Report 4744754-3 (Version None)
Quarter: 2005Q3

REPORT INFORMATION
  Report Type: 
  Country: None (occurrence: None)
  Receive Date: 20050815
  Receipt Date: 20050802
  Transmission Date: 20060218
  Serious: Yes (Hospitalization)
  Sender: FDA-Public Use
  Company Number: GB-GLAXOSMITHKLINE-B0389545A

PATIENT
  Sex: Female

DRUGS (1)
  1. NIQUITIN CQ CLEAR 21MG [Suspect]
     Route: 062

REACTIONS (6)
  - DIARRHOEA [None]
  - DIZZINESS [None]
  - HYPERHIDROSIS [None]
  - PALPITATIONS [None]
  - TACHYCARDIA [None]
  - VOMITING [None]
